FAERS Safety Report 12904118 (Version 1)
Quarter: 2016Q4

REPORT INFORMATION
  Report Type: Spontaneous
  Country: IT (occurrence: IT)
  Receive Date: 20161102
  Receipt Date: 20161102
  Transmission Date: 20170207
  Serious: Yes (Death)
  Sender: FDA-Public Use
  Company Number: IT-MUNDIPHARMA DS AND PHARMACOVIGILANCE-DEU-2016-0018320

PATIENT
  Age: 63 Year
  Sex: Male

DRUGS (3)
  1. MORPHINE SULFATE. [Suspect]
     Active Substance: MORPHINE SULFATE
     Indication: PALLIATIVE CARE
     Dosage: 4 MG, UNK
     Route: 042
     Dates: start: 201311
  2. METHYLPREDNISOLONE. [Suspect]
     Active Substance: METHYLPREDNISOLONE
     Indication: PALLIATIVE CARE
     Dosage: 40 MG, UNK
     Route: 042
     Dates: start: 201311
  3. SALT SOLUTIONS [Concomitant]
     Indication: PALLIATIVE CARE
     Dosage: UNK
     Route: 042
     Dates: start: 201311

REACTIONS (1)
  - Acute respiratory failure [Fatal]

NARRATIVE: CASE EVENT DATE: 201311
